FAERS Safety Report 16371079 (Version 1)
Quarter: 2019Q2

REPORT INFORMATION
  Report Type: Spontaneous
  Country: DE (occurrence: DE)
  Receive Date: 20190530
  Receipt Date: 20190530
  Transmission Date: 20190711
  Serious: Yes (Hospitalization)
  Sender: FDA-Public Use
  Company Number: DE-BIOGEN-2019BI00742387

PATIENT
  Sex: Female

DRUGS (4)
  1. LEMTRADA [Concomitant]
     Active Substance: ALEMTUZUMAB
     Indication: PRODUCT USED FOR UNKNOWN INDICATION
     Route: 065
     Dates: start: 201904, end: 201904
  2. PARACETAMOL [Concomitant]
     Active Substance: ACETAMINOPHEN
     Indication: PRODUCT USED FOR UNKNOWN INDICATION
     Route: 065
     Dates: start: 201904, end: 201904
  3. TECFIDERA [Suspect]
     Active Substance: DIMETHYL FUMARATE
     Indication: MULTIPLE SCLEROSIS
     Dosage: MAINTENANCE DOSE
     Route: 048
     Dates: end: 2018
  4. ACICLOVIR [Concomitant]
     Active Substance: ACYCLOVIR
     Indication: PRODUCT USED FOR UNKNOWN INDICATION
     Route: 065

REACTIONS (10)
  - Multiple sclerosis relapse [Not Recovered/Not Resolved]
  - Gait disturbance [Recovered/Resolved]
  - Headache [Recovered/Resolved with Sequelae]
  - Pain [Not Recovered/Not Resolved]
  - Fatigue [Recovered/Resolved]
  - Asthenia [Recovered/Resolved with Sequelae]
  - Drug ineffective [Recovered/Resolved]
  - Inflammation [Not Recovered/Not Resolved]
  - Respiratory disorder [Recovered/Resolved with Sequelae]
  - Lymphocyte count abnormal [Not Recovered/Not Resolved]

NARRATIVE: CASE EVENT DATE: 2018
